FAERS Safety Report 18194566 (Version 2)
Quarter: 2020Q3

REPORT INFORMATION
  Report Type: Spontaneous
  Country: DE (occurrence: DE)
  Receive Date: 20200825
  Receipt Date: 20200923
  Transmission Date: 20201103
  Serious: No
  Sender: FDA-Public Use
  Company Number: DE-JNJFOC-20200808001

PATIENT
  Age: 62 Year
  Sex: Male

DRUGS (5)
  1. DUROGESIC SMAT [Suspect]
     Active Substance: FENTANYL
  2. XARELTO [Concomitant]
     Active Substance: RIVAROXABAN
     Indication: ARTERIAL OCCLUSIVE DISEASE
     Dosage: 1XTGL.
     Route: 065
  3. DUROGESIC SMAT [Suspect]
     Active Substance: FENTANYL
     Indication: PRODUCT USED FOR UNKNOWN INDICATION
     Dosage: 50 UG/HR 8.4 MG
     Route: 062
     Dates: start: 20200608
  4. DUROGESIC SMAT [Suspect]
     Active Substance: FENTANYL
  5. ASPIRIN. [Concomitant]
     Active Substance: ASPIRIN
     Indication: ARTERIAL OCCLUSIVE DISEASE
     Dosage: 1XTGL.
     Route: 065

REACTIONS (3)
  - Product adhesion issue [Unknown]
  - Hyperhidrosis [Unknown]
  - Pain in extremity [Unknown]

NARRATIVE: CASE EVENT DATE: 2020
